FAERS Safety Report 8078485-1 (Version None)
Quarter: 2012Q1

REPORT INFORMATION
  Report Type: 
  Country: None (occurrence: None)
  Receive Date: 20120127
  Receipt Date: 20120127
  Transmission Date: 20120608
  Serious: Yes (Hospitalization)
  Sender: FDA-Public Use
  Company Number: None

PATIENT
  Sex: Female
  Weight: 94.8018 kg

DRUGS (2)
  1. XYLOCAINE W/ EPINEPHRINE [Suspect]
     Indication: NERVE BLOCK
     Dosage: 36 MG OF LIDOCAINE 0.018MG EPI X2 DENTAL 004 2 DOSES
     Route: 004
     Dates: start: 20111110
  2. XYLOCAINE W/ EPINEPHRINE [Suspect]
     Indication: TOOTH EXTRACTION
     Dosage: 36 MG OF LIDOCAINE 0.018MG EPI X2 DENTAL 004 2 DOSES
     Route: 004
     Dates: start: 20111110

REACTIONS (9)
  - INFECTION [None]
  - CYANOSIS [None]
  - CONVULSION [None]
  - MOUTH HAEMORRHAGE [None]
  - CARDIO-RESPIRATORY ARREST [None]
  - CONFUSIONAL STATE [None]
  - MEMORY IMPAIRMENT [None]
  - ABSCESS [None]
  - METASTATIC NEOPLASM [None]
